FAERS Safety Report 7965308-1 (Version None)
Quarter: 2011Q4

REPORT INFORMATION
  Report Type: 
  Country: None (occurrence: None)
  Receive Date: 20111208
  Receipt Date: 20111201
  Transmission Date: 20120403
  Serious: Yes (Hospitalization, Other)
  Sender: FDA-Public Use
  Company Number: CZ-AMGEN-CZESP2011053773

PATIENT
  Sex: Female

DRUGS (9)
  1. ENBREL [Suspect]
     Indication: PSORIATIC ARTHROPATHY
     Dosage: 50 MG, WEEKLY
     Route: 058
     Dates: start: 20070514
  2. CALCICHEW-D3 [Concomitant]
     Dosage: UNK
  3. MEDROL [Concomitant]
     Dosage: 4 MG, EVERY OTHER DAY
  4. BETAXOLOL [Concomitant]
     Dosage: 5 MG, 1X/DAY
  5. MICARDIS HCT [Concomitant]
     Dosage: UNK
  6. BONVIVA                            /01304701/ [Concomitant]
     Dosage: UNK
  7. MELOXICAM [Concomitant]
     Dosage: 15 MG, 1X/DAY
  8. ATORVASTATIN [Concomitant]
     Dosage: UNK
  9. INDOMETHACIN [Concomitant]
     Dosage: UNK

REACTIONS (8)
  - MENINGOCOCCAL SEPSIS [None]
  - LOSS OF CONSCIOUSNESS [None]
  - DIARRHOEA [None]
  - SHOCK [None]
  - PYREXIA [None]
  - LEUKOPENIA [None]
  - VOMITING [None]
  - SEPTIC SHOCK [None]
